FAERS Safety Report 5640204-3 (Version None)
Quarter: 2008Q1

REPORT INFORMATION
  Report Type: 
  Country: None (occurrence: None)
  Receive Date: 20080227
  Receipt Date: 20080219
  Transmission Date: 20080703
  Serious: Yes (Hospitalization, Other)
  Sender: FDA-Public Use
  Company Number: GB-BAYER-200810254GPV

PATIENT
  Age: 33 Year
  Sex: Male

DRUGS (3)
  1. ASPIRIN [Suspect]
     Indication: DRUG USE FOR UNKNOWN INDICATION
     Dosage: TOTAL DAILY DOSE: 25 G  UNIT DOSE: 250 MG
     Route: 048
  2. PHENACETIN [Suspect]
     Indication: DRUG USE FOR UNKNOWN INDICATION
     Dosage: TOTAL DAILY DOSE: 25 G  UNIT DOSE: 250 MG
     Route: 048
  3. CODEINE SUL TAB [Concomitant]
     Indication: DRUG USE FOR UNKNOWN INDICATION
     Dosage: TOTAL DAILY DOSE: 800 MG  UNIT DOSE: 8 MG
     Route: 048

REACTIONS (4)
  - ANURIA [None]
  - INTRAVASCULAR HAEMOLYSIS [None]
  - RENAL FAILURE ACUTE [None]
  - VOMITING [None]
